FAERS Safety Report 9525357 (Version 1)
Quarter: 2013Q1

REPORT INFORMATION
  Report Type: Spontaneous
  Country: US (occurrence: None)
  Receive Date: 20130314
  Receipt Date: 20130314
  Transmission Date: 20140127
  Serious: No
  Sender: FDA-Public Use
  Company Number: 1212USA004833

PATIENT
  Age: 63 Year
  Sex: Male

DRUGS (3)
  1. VICTRELIS (BOCEPREVIR) CAPSULE [Suspect]
     Indication: HEPATITIS C
     Dates: start: 20121116
  2. RIBAVIRIN (RIBAVIRIN) CAPSULE [Suspect]
     Indication: HEPATITIS C
     Dates: start: 20121018
  3. PEGASYS (PEGINTERFERON ALFA-2A) [Suspect]
     Indication: HEPATITIS C
     Dates: start: 20121018

REACTIONS (2)
  - Asthenia [None]
  - Fatigue [None]
